FAERS Safety Report 9394597 (Version 1)
Quarter: 2013Q3

REPORT INFORMATION
  Report Type: Spontaneous
  Country: AU (occurrence: AU)
  Receive Date: 20130711
  Receipt Date: 20130711
  Transmission Date: 20140515
  Serious: Yes (Other)
  Sender: FDA-Public Use
  Company Number: AU-ROCHE-1247582

PATIENT
  Sex: Male

DRUGS (7)
  1. VALIUM [Suspect]
     Indication: PRODUCT USED FOR UNKNOWN INDICATION
     Route: 065
  2. MADOPAR [Interacting]
     Indication: PARKINSON^S DISEASE
     Route: 062
  3. NEUPRO [Interacting]
     Indication: PRODUCT USED FOR UNKNOWN INDICATION
     Route: 062
  4. TOFRANIL [Interacting]
     Indication: DEPRESSION
     Route: 065
  5. NEXIUM [Concomitant]
     Route: 048
  6. PANADEINE FORTE [Concomitant]
  7. VOLTAREN [Concomitant]

REACTIONS (2)
  - Serotonin syndrome [Recovered/Resolved]
  - Drug interaction [Unknown]
